FAERS Safety Report 19724775 (Version 2)
Quarter: 2021Q3

REPORT INFORMATION
  Report Type: Report from Study
  Country: JP (occurrence: JP)
  Receive Date: 20210820
  Receipt Date: 20210831
  Transmission Date: 20211014
  Serious: Yes (Other)
  Sender: FDA-Public Use
  Company Number: JP-SA-2021SA271240

PATIENT
  Sex: Male

DRUGS (3)
  1. DOCETAXEL. [Suspect]
     Active Substance: DOCETAXEL
     Indication: OESOPHAGEAL CARCINOMA
     Dosage: 30 MG/M2 ON DAY 1, 15
     Route: 041
  2. 5?FU [FLUOROURACIL] [Concomitant]
     Active Substance: FLUOROURACIL
     Indication: OESOPHAGEAL CARCINOMA
     Dosage: 800 MG/M2 ON DAY 1?5
     Route: 065
  3. CISPLATIN. [Concomitant]
     Active Substance: CISPLATIN
     Indication: OESOPHAGEAL CARCINOMA
     Dosage: 80 MG/M2 ON DAY 1
     Route: 065

REACTIONS (4)
  - Febrile neutropenia [Unknown]
  - Pyrexia [Recovering/Resolving]
  - Vomiting [Recovering/Resolving]
  - Pneumatosis intestinalis [Recovering/Resolving]
